FAERS Safety Report 7125605-9 (Version None)
Quarter: 2010Q4

REPORT INFORMATION
  Report Type: 
  Country: None (occurrence: None)
  Receive Date: 20101129
  Receipt Date: 20101115
  Transmission Date: 20110411
  Serious: Yes (Other)
  Sender: FDA-Public Use
  Company Number: US-ROCHE-741796

PATIENT
  Age: 22 Year
  Sex: Male

DRUGS (13)
  1. MYCOPHENOLATE MOFETIL [Suspect]
     Indication: GRAFT VERSUS HOST DISEASE
     Route: 048
  2. DACLIZUMAB [Suspect]
     Indication: GRAFT VERSUS HOST DISEASE
     Route: 065
  3. INFLIXIMAB [Suspect]
     Indication: GRAFT VERSUS HOST DISEASE
     Dosage: TWO TIMES PER WEEK THEN ONCE PER WEEK FOR FOUR MORE DOSES
     Route: 065
  4. INFLIXIMAB [Suspect]
     Route: 065
  5. SIROLIMUS [Suspect]
     Indication: GRAFT VERSUS HOST DISEASE
     Route: 065
  6. BUDESONIDE [Suspect]
     Indication: GRAFT VERSUS HOST DISEASE
     Route: 065
  7. THYMOGLOBULIN [Suspect]
     Indication: GRAFT VERSUS HOST DISEASE
     Dosage: DRUG: RABBIT THYMOGLOBULIN
     Route: 065
  8. PREDNISONE [Suspect]
     Indication: GRAFT VERSUS HOST DISEASE
     Route: 065
  9. PREDNISONE [Suspect]
     Route: 065
  10. PREDNISONE [Suspect]
     Route: 065
  11. TACROLIMUS [Suspect]
     Indication: GRAFT VERSUS HOST DISEASE
     Route: 065
  12. METHOTREXATE [Suspect]
     Indication: GRAFT VERSUS HOST DISEASE
     Route: 065
  13. METHOTREXATE [Suspect]
     Route: 065

REACTIONS (5)
  - BRONCHOPULMONARY ASPERGILLOSIS [None]
  - CYTOMEGALOVIRUS INFECTION [None]
  - DRUG DEPENDENCE [None]
  - EPSTEIN-BARR VIRUS INFECTION [None]
  - ILEUS [None]
